FAERS Safety Report 12419591 (Version 1)
Quarter: 2016Q2

REPORT INFORMATION
  Report Type: Other
  Country: FR (occurrence: FR)
  Receive Date: 20160531
  Receipt Date: 20160531
  Transmission Date: 20160815
  Serious: Yes (Death, Life-Threatening, Other)
  Sender: FDA-Public Use
  Company Number: FR-ASTELLAS-2016US020657

PATIENT
  Age: 66 Year
  Sex: Female

DRUGS (3)
  1. PROGRAF [Suspect]
     Active Substance: TACROLIMUS\TACROLIMUS ANHYDROUS
     Indication: PROPHYLAXIS AGAINST TRANSPLANT REJECTION
     Dosage: UNK UNK, UNKNOWN FREQ.
     Route: 048
     Dates: start: 20160312
  2. CELLCEPT [Suspect]
     Active Substance: MYCOPHENOLATE MOFETIL\MYCOPHENOLATE MOFETIL HYDROCHLORIDE
     Indication: PROPHYLAXIS AGAINST TRANSPLANT REJECTION
     Route: 048
     Dates: start: 20160312, end: 20160416
  3. PROGRAF [Suspect]
     Active Substance: TACROLIMUS\TACROLIMUS ANHYDROUS
     Dosage: UNK, UNKNOWN FREQ.
     Route: 065
     Dates: end: 20160406

REACTIONS (19)
  - Duodenitis [Unknown]
  - Posterior reversible encephalopathy syndrome [Not Recovered/Not Resolved]
  - Haemothorax [Unknown]
  - Visual impairment [Unknown]
  - Hallucination [Unknown]
  - Oesophageal candidiasis [Unknown]
  - Aplasia [Not Recovered/Not Resolved]
  - Bacteraemia [Unknown]
  - Renal failure [Unknown]
  - Colitis [Not Recovered/Not Resolved]
  - Pneumonia staphylococcal [Unknown]
  - Agranulocytosis [Not Recovered/Not Resolved]
  - Septic shock [Fatal]
  - Complications of transplanted heart [Unknown]
  - Thrombocytopenia [Not Recovered/Not Resolved]
  - Acute kidney injury [Unknown]
  - Acute respiratory distress syndrome [Unknown]
  - Enterococcal infection [Unknown]
  - Overdose [Unknown]

NARRATIVE: CASE EVENT DATE: 20160329
